FAERS Safety Report 22011672 (Version 1)
Quarter: 2023Q1

REPORT INFORMATION
  Report Type: Report from Study
  Country: US (occurrence: US)
  Receive Date: 20230220
  Receipt Date: 20230220
  Transmission Date: 20230417
  Serious: Yes (Hospitalization, Other)
  Sender: FDA-Public Use
  Company Number: US-IPSEN Group, Research and Development-2022-00484

PATIENT
  Age: 70 Year
  Sex: Male

DRUGS (1)
  1. SOMATULINE DEPOT [Suspect]
     Active Substance: LANREOTIDE ACETATE
     Indication: Carcinoid tumour
     Dosage: 120MG, BUTTOCKS, DEEP SQ.
     Route: 058
     Dates: start: 202001

REACTIONS (6)
  - Lung neoplasm [Recovering/Resolving]
  - Hepatic neoplasm [Recovering/Resolving]
  - Bone cancer [Unknown]
  - Constipation [Unknown]
  - Back pain [Unknown]
  - Depressed mood [Unknown]
